FAERS Safety Report 8821138 (Version 1)
Quarter: 2012Q4

REPORT INFORMATION
  Report Type: 
  Country: ES (occurrence: ES)
  Receive Date: 20121002
  Receipt Date: 20121002
  Transmission Date: 20130627
  Serious: Yes (Other)
  Sender: FDA-Public Use
  Company Number: ES-WATSON-2012-16887

PATIENT
  Age: 82 Year
  Sex: Female

DRUGS (2)
  1. BETAMETHASONE [Suspect]
     Indication: OSTEOARTHRITIS
     Dosage: unk
     Route: 065
  2. DEXAMETHASONE [Suspect]
     Indication: ALLERGY TEST
     Dosage: UNK
     Route: 065

REACTIONS (2)
  - Eczema [Recovered/Resolved]
  - Allergy test positive [Recovered/Resolved]
